FAERS Safety Report 9514671 (Version 1)
Quarter: 2013Q3

REPORT INFORMATION
  Report Type: Spontaneous
  Country: CN (occurrence: CN)
  Receive Date: 20130911
  Receipt Date: 20130911
  Transmission Date: 20140515
  Serious: Yes (Other)
  Sender: FDA-Public Use
  Company Number: CN-ROCHE-1272730

PATIENT
  Sex: Male
  Weight: 76 kg

DRUGS (1)
  1. PEGASYS [Suspect]
     Indication: CHRONIC HEPATITIS B
     Route: 058
     Dates: start: 20110826, end: 20111209

REACTIONS (1)
  - Mental disorder [Recovering/Resolving]
